FAERS Safety Report 4302128-3 (Version None)
Quarter: 2004Q1

REPORT INFORMATION
  Report Type: 
  Country: None (occurrence: None)
  Receive Date: 20040220
  Receipt Date: 20040217
  Transmission Date: 20041129
  Serious: Yes (Other)
  Sender: FDA-Public Use
  Company Number: 2004-01-1356

PATIENT
  Age: 3 Year
  Sex: Male

DRUGS (3)
  1. GENTAMICIN [Suspect]
     Indication: SEPSIS
     Dosage: 2.5 MG Q8H INTRAVENOUS
     Route: 042
     Dates: start: 20000101, end: 20000101
  2. PENICILLIN G [Suspect]
     Indication: SEPSIS
     Dosage: INTRAVENOUS
     Route: 042
     Dates: start: 20000101, end: 20000101
  3. ASPIRIN [Concomitant]

REACTIONS (8)
  - COMPLEMENT FACTOR C4 INCREASED [None]
  - FIBRIN DEGRADATION PRODUCTS INCREASED [None]
  - HAEMATOCRIT DECREASED [None]
  - HAEMOGLOBIN DECREASED [None]
  - RED BLOOD CELLS URINE [None]
  - SERUM SICKNESS [None]
  - WHITE BLOOD CELL COUNT INCREASED [None]
  - WHITE BLOOD CELLS URINE POSITIVE [None]
